FAERS Safety Report 24307735 (Version 3)
Quarter: 2024Q4

REPORT INFORMATION
  Report Type: Spontaneous
  Country: GR (occurrence: GR)
  Receive Date: 20240911
  Receipt Date: 20241105
  Transmission Date: 20250115
  Serious: No
  Sender: PFIZER
  Company Number: GR-PFIZER INC-PV202400117107

PATIENT
  Age: 13 Year
  Sex: Male
  Weight: 55 kg

DRUGS (2)
  1. GENOTROPIN [Suspect]
     Active Substance: SOMATROPIN
     Indication: Growth hormone deficiency
     Dosage: 11 MG, WEEKLY (WITHOUT DAY-OFF)
     Route: 058
     Dates: start: 20220606
  2. ARIMIDEX [Concomitant]
     Active Substance: ANASTROZOLE
     Indication: Bone disorder
     Dosage: 1 MG, 1X/DAY

REACTIONS (1)
  - Device occlusion [Unknown]
